FAERS Safety Report 17420951 (Version 1)
Quarter: 2020Q1

REPORT INFORMATION
  Report Type: Spontaneous
  Country: US (occurrence: US)
  Receive Date: 20200214
  Receipt Date: 20200214
  Transmission Date: 20200409
  Serious: No
  Sender: FDA-Public Use
  Company Number: US-THERAPEUTICSMD-2019TMD04720

PATIENT
  Age: 64 Year
  Sex: Female
  Weight: 55.33 kg

DRUGS (2)
  1. VITAMINS [Concomitant]
     Active Substance: VITAMINS
     Dosage: UNK
  2. BIJUVA [Suspect]
     Active Substance: ESTRADIOL\PROGESTERONE
     Indication: HORMONE REPLACEMENT THERAPY
     Dosage: 1 CAPSULES, 1X/DAY
     Route: 048
     Dates: start: 20190801

REACTIONS (7)
  - Neck pain [Not Recovered/Not Resolved]
  - Dry eye [Unknown]
  - Dizziness [Recovered/Resolved]
  - Nerve compression [Not Recovered/Not Resolved]
  - Off label use [Not Recovered/Not Resolved]
  - Photophobia [Recovering/Resolving]
  - Vision blurred [Unknown]

NARRATIVE: CASE EVENT DATE: 2019
